FAERS Safety Report 9280624 (Version 1)
Quarter: 2013Q2

REPORT INFORMATION
  Report Type: Spontaneous
  Country: US (occurrence: None)
  Receive Date: 20130508
  Receipt Date: 20130508
  Transmission Date: 20140414
  Serious: Yes (Death, Other)
  Sender: FDA-Public Use
  Company Number: None

PATIENT
  Age: 86 Year
  Sex: Male
  Weight: 63.5 kg

DRUGS (1)
  1. AMIODARONE [Suspect]
     Dosage: 1 PILL  1 TIME A DAY
     Dates: start: 20120801, end: 20130311

REACTIONS (1)
  - Toxicity to various agents [None]
